FAERS Safety Report 5001877-1 (Version None)
Quarter: 2006Q2

REPORT INFORMATION
  Report Type: 
  Country: None (occurrence: None)
  Receive Date: 20060515
  Receipt Date: 20041129
  Transmission Date: 20061013
  Serious: Yes (Hospitalization)
  Sender: FDA-Public Use
  Company Number: US-MERCK-0411USA04266

PATIENT
  Age: 69 Year
  Sex: Female
  Weight: 80 kg

DRUGS (1)
  1. VIOXX [Suspect]
     Indication: OSTEOARTHRITIS
     Route: 048
     Dates: start: 20000101, end: 20040901

REACTIONS (18)
  - ACUTE MYOCARDIAL INFARCTION [None]
  - ANXIETY [None]
  - ARTHROPATHY [None]
  - ASTHMA [None]
  - CARPAL TUNNEL SYNDROME [None]
  - CORONARY ARTERY DISEASE [None]
  - DERMAL CYST [None]
  - DIVERTICULITIS [None]
  - ESSENTIAL HYPERTENSION [None]
  - IRRITABLE BOWEL SYNDROME [None]
  - MACULAR DEGENERATION [None]
  - NEUROPATHY PERIPHERAL [None]
  - OSTEOPOROSIS [None]
  - PLATELET AGGREGATION INCREASED [None]
  - SUPRAVENTRICULAR TACHYCARDIA [None]
  - TOE DEFORMITY [None]
  - VENOUS INSUFFICIENCY [None]
  - VERTIGO POSITIONAL [None]
